FAERS Safety Report 24592966 (Version 1)
Quarter: 2024Q4

REPORT INFORMATION
  Report Type: Spontaneous
  Country: US (occurrence: US)
  Receive Date: 20241108
  Receipt Date: 20241108
  Transmission Date: 20250115
  Serious: No
  Sender: XERIS PHARMACEUTICALS
  Company Number: US-BRIAN CONNER SVP QUALITY AND CHIEF COMPLIANCE OFFICER-2024XER00148

PATIENT
  Sex: Male
  Weight: 93.894 kg

DRUGS (2)
  1. GVOKE [Suspect]
     Active Substance: GLUCAGON
     Indication: Type 2 diabetes mellitus
     Dosage: 1 MG (USED ONCE)
     Route: 065
     Dates: start: 2024, end: 2024
  2. GVOKE [Suspect]
     Active Substance: GLUCAGON
     Indication: Hypoglycaemia

REACTIONS (2)
  - Diabetes mellitus inadequate control [Not Recovered/Not Resolved]
  - Feeling abnormal [Not Recovered/Not Resolved]

NARRATIVE: CASE EVENT DATE: 20240101
